FAERS Safety Report 13070409 (Version 1)
Quarter: 2016Q4

REPORT INFORMATION
  Report Type: Report from Study
  Country: JP (occurrence: JP)
  Receive Date: 20161228
  Receipt Date: 20161228
  Transmission Date: 20170207
  Serious: Yes (Hospitalization, Other)
  Sender: FDA-Public Use
  Company Number: JP-ALXN-A201608341AA

PATIENT

DRUGS (1)
  1. STRENSIQ [Suspect]
     Active Substance: ASFOTASE ALFA
     Indication: HYPOPHOSPHATASIA
     Dosage: 2 MG/KG, TIW
     Route: 058
     Dates: start: 20150911

REACTIONS (3)
  - Febrile convulsion [Recovered/Resolved]
  - Neutralising antibodies positive [Unknown]
  - Pyrexia [Recovering/Resolving]

NARRATIVE: CASE EVENT DATE: 201606
